FAERS Safety Report 8227077-X (Version None)
Quarter: 2012Q1

REPORT INFORMATION
  Report Type: 
  Country: None (occurrence: None)
  Receive Date: 20120322
  Receipt Date: 20120315
  Transmission Date: 20120608
  Serious: No
  Sender: FDA-Public Use
  Company Number: US-PFIZER INC-2012069797

PATIENT
  Age: 69 Year
  Sex: Female

DRUGS (1)
  1. LOPID [Suspect]
     Dosage: UNK

REACTIONS (2)
  - DIARRHOEA [None]
  - DRUG HYPERSENSITIVITY [None]
